FAERS Safety Report 4473173-2 (Version None)
Quarter: 2004Q4

REPORT INFORMATION
  Report Type: 
  Country: None (occurrence: None)
  Receive Date: 20041008
  Receipt Date: 20040923
  Transmission Date: 20050328
  Serious: Yes (Death)
  Sender: FDA-Public Use
  Company Number: 2004IM000867

PATIENT
  Age: 53 Year
  Sex: Female

DRUGS (1)
  1. ADVAFERON (A643_INTERFERON ALFACON-1) [Suspect]
     Dosage: SUBCUTANEOUS
     Route: 058

REACTIONS (2)
  - PANCYTOPENIA [None]
  - SEPSIS [None]
